FAERS Safety Report 8407375-7 (Version None)
Quarter: 2012Q2

REPORT INFORMATION
  Report Type: 
  Country: None (occurrence: None)
  Receive Date: 20120323
  Receipt Date: 20110204
  Transmission Date: 20120825
  Serious: Yes (Hospitalization)
  Sender: FDA-Public Use
  Company Number: 163-21880-11021145

PATIENT
  Age: 66 Year
  Sex: Male

DRUGS (6)
  1. REVLIMID [Suspect]
     Indication: MULTIPLE MYELOMA
     Dosage: 25 MG, DAILY X 21 DAYS ON, THEN 7  DAYS OFF, PO
     Route: 048
     Dates: start: 20110208
  2. REVLIMID [Suspect]
     Indication: MULTIPLE MYELOMA
     Dosage: 25 MG, DAILY X 21 DAYS ON, THEN 7  DAYS OFF, PO
     Route: 048
     Dates: start: 20090426
  3. FRAGMIN [Concomitant]
  4. REVLIMID [Suspect]
  5. WARFARIN SODIUM [Concomitant]
  6. MEDROL [Concomitant]

REACTIONS (1)
  - ABSCESS [None]
